FAERS Safety Report 8554228-X (Version None)
Quarter: 2012Q3

REPORT INFORMATION
  Report Type: 
  Country: None (occurrence: None)
  Receive Date: 20120731
  Receipt Date: 20120716
  Transmission Date: 20120928
  Serious: No
  Sender: FDA-Public Use
  Company Number: US-ASTRAZENECA-2012SE40813

PATIENT
  Age: 8 Year
  Sex: Female

DRUGS (1)
  1. CRESTOR [Suspect]
     Route: 048

REACTIONS (6)
  - PRECOCIOUS PUBERTY [None]
  - BLOOD CHOLESTEROL INCREASED [None]
  - HYPERSENSITIVITY [None]
  - OFF LABEL USE [None]
  - BLOOD TRIGLYCERIDES INCREASED [None]
  - ASTHMA [None]
